FAERS Safety Report 15620267 (Version 1)
Quarter: 2018Q4

REPORT INFORMATION
  Report Type: Spontaneous
  Country: NL (occurrence: NL)
  Receive Date: 20181115
  Receipt Date: 20181115
  Transmission Date: 20190205
  Serious: Yes (Other)
  Sender: FDA-Public Use
  Company Number: NL-TEVA-2018-NL-975144

PATIENT
  Age: 63 Year
  Sex: Female
  Weight: 78 kg

DRUGS (3)
  1. FLUTICASONPROPIONAAT 50 MG [Suspect]
     Active Substance: FLUTICASONE
     Indication: RHINITIS
     Dosage: 2 DOSAGE FORMS DAILY; 2 X PER DAY SPRAY
     Route: 065
     Dates: start: 20170101, end: 20170106
  2. EPREX 10.000IE/1,0 ML [Concomitant]
     Dosage: 1 TIME PER WEEK 1 PIECE (S)
     Route: 065
     Dates: start: 2006
  3. PEGASYS 0.45 MICROGRAM [Concomitant]
     Dosage: 1 X PER 3 WEEKS
     Dates: start: 20160315

REACTIONS (2)
  - Atrial fibrillation [Recovered/Resolved]
  - Therapeutic response unexpected [Recovered/Resolved]

NARRATIVE: CASE EVENT DATE: 20170102
